FAERS Safety Report 7208511-0 (Version None)
Quarter: 2011Q1

REPORT INFORMATION
  Report Type: 
  Country: None (occurrence: None)
  Receive Date: 20110104
  Receipt Date: 20100708
  Transmission Date: 20110831
  Serious: Yes (Hospitalization, Other)
  Sender: FDA-Public Use
  Company Number: US-BAYER-200943119NA

PATIENT
  Sex: Female
  Weight: 61.364 kg

DRUGS (4)
  1. MULTIVITAMIN [Concomitant]
  2. OCELLA [Suspect]
     Indication: PRODUCT USED FOR UNKNOWN INDICATION
     Route: 048
     Dates: start: 20080808, end: 20080826
  3. YAZ [Suspect]
     Indication: PRODUCT USED FOR UNKNOWN INDICATION
     Dates: start: 20080801, end: 20080801
  4. YASMIN [Suspect]
     Indication: PRODUCT USED FOR UNKNOWN INDICATION
     Dates: start: 20080801, end: 20080801

REACTIONS (5)
  - TROPONIN INCREASED [None]
  - PALPITATIONS [None]
  - PULMONARY EMBOLISM [None]
  - CHEST PAIN [None]
  - MENSTRUAL DISORDER [None]
